FAERS Safety Report 23320736 (Version 4)
Quarter: 2024Q2

REPORT INFORMATION
  Report Type: Spontaneous
  Country: MX (occurrence: MX)
  Receive Date: 20231220
  Receipt Date: 20240507
  Transmission Date: 20240716
  Serious: Yes (Hospitalization, Other)
  Sender: FDA-Public Use
  Company Number: MX-PFIZER INC-PV202300203700

PATIENT
  Age: 30 Year
  Sex: Female
  Weight: 58 kg

DRUGS (16)
  1. DEPO-PROVERA [Suspect]
     Active Substance: MEDROXYPROGESTERONE ACETATE
     Indication: Contraception
     Dosage: 150 MG, EVERY 3 MONTHS
     Route: 058
     Dates: start: 202101, end: 202307
  2. CEPHALEXIN [Concomitant]
     Active Substance: CEPHALEXIN
     Dosage: 500 MG, 3X/DAY
     Route: 048
     Dates: start: 20211212, end: 20211217
  3. CEFTRIAXONE [Concomitant]
     Active Substance: CEFTRIAXONE\CEFTRIAXONE SODIUM
     Dosage: UNK, DAILY
     Route: 030
     Dates: start: 20211218, end: 20211223
  4. PREDNISONE [Concomitant]
     Active Substance: PREDNISONE
     Dosage: UNK, DAILY
     Route: 048
     Dates: start: 202204, end: 202207
  5. PREDNISONE [Concomitant]
     Active Substance: PREDNISONE
     Dosage: 50 MG, DAILY
  6. PREDNISONE [Concomitant]
     Active Substance: PREDNISONE
     Dosage: 25 MG, DAILY
  7. PREDNISONE [Concomitant]
     Active Substance: PREDNISONE
     Dosage: 12.5 MG, DAILY
  8. PREDNISONE [Concomitant]
     Active Substance: PREDNISONE
     Dosage: 12.5 MG, DAILY
  9. AMOXICILLIN\CLAVULANIC ACID [Concomitant]
     Active Substance: AMOXICILLIN\CLAVULANIC ACID
     Dosage: 1 DF, 2X/DAY
  10. BACTRIM [Concomitant]
     Active Substance: SULFAMETHOXAZOLE\TRIMETHOPRIM
     Dosage: 1 DF, 2X/DAY
  11. SERRAPEPTASE [Concomitant]
     Active Substance: SERRAPEPTASE
     Dosage: 10 MG, 3X/DAY
  12. PREMASTAN [Concomitant]
     Dosage: UNK, 2X/DAY
  13. DICLOFENAC DIETHYLAMINE [Concomitant]
     Active Substance: DICLOFENAC DIETHYLAMINE
     Dosage: UNK, 3X/DAY
  14. CEFIXIME [Concomitant]
     Active Substance: CEFIXIME
     Dosage: 400 MG, DAILY
     Route: 048
  15. DOLAC [KETOROLAC] [Concomitant]
     Dosage: 30 MG, 3X/DAY
     Route: 060
  16. ACETAMINOPHEN [Concomitant]
     Active Substance: ACETAMINOPHEN
     Dosage: 750 MG, 3X/DAY
     Route: 048

REACTIONS (5)
  - Breast abscess [Recovered/Resolved]
  - Benign breast neoplasm [Recovered/Resolved]
  - Breast mass [Recovered/Resolved]
  - Mastitis [Recovered/Resolved]
  - Off label use [Unknown]

NARRATIVE: CASE EVENT DATE: 20210101
